FAERS Safety Report 16986678 (Version 1)
Quarter: 2019Q4

REPORT INFORMATION
  Report Type: Spontaneous
  Country: IT (occurrence: IT)
  Receive Date: 20191101
  Receipt Date: 20191101
  Transmission Date: 20200122
  Serious: Yes (Other)
  Sender: FDA-Public Use
  Company Number: IT-ELI_LILLY_AND_COMPANY-IT201910010636

PATIENT
  Age: 53 Year
  Sex: Male

DRUGS (8)
  1. MINIAS [Suspect]
     Active Substance: LORMETAZEPAM
     Indication: INSOMNIA
     Dosage: 30 DOSAGE FORM, DAILY
     Route: 048
  2. CONGESCOR [Concomitant]
     Active Substance: BISOPROLOL
  3. ENTRESTO [Concomitant]
     Active Substance: SACUBITRIL\VALSARTAN
  4. PANTORC [Concomitant]
     Active Substance: PANTOPRAZOLE SODIUM
  5. OLANZAPINE. [Suspect]
     Active Substance: OLANZAPINE
     Indication: SCHIZOPHRENIA
     Route: 048
     Dates: end: 20190919
  6. ESILGAN [Suspect]
     Active Substance: ESTAZOLAM
     Indication: INSOMNIA
     Route: 048
     Dates: end: 20190919
  7. XARELTO [Concomitant]
     Active Substance: RIVAROXABAN
  8. SOTALEX [Concomitant]
     Active Substance: SOTALOL

REACTIONS (2)
  - Malaise [Recovering/Resolving]
  - Toxicity to various agents [Recovering/Resolving]

NARRATIVE: CASE EVENT DATE: 20190919
